FAERS Safety Report 7265170-9 (Version None)
Quarter: 2011Q1

REPORT INFORMATION
  Report Type: 
  Country: None (occurrence: None)
  Receive Date: 20110131
  Receipt Date: 20110127
  Transmission Date: 20110831
  Serious: Yes (Hospitalization)
  Sender: FDA-Public Use
  Company Number: AT-SANOFI-AVENTIS-2010SA071292

PATIENT
  Age: 72 Year
  Sex: Male

DRUGS (22)
  1. ELOXATIN [Suspect]
     Route: 041
     Dates: start: 20101130, end: 20101130
  2. ELOXATIN [Suspect]
     Indication: GASTRIC CANCER
     Route: 041
     Dates: start: 20101118, end: 20101118
  3. SELOKEN [Concomitant]
     Route: 048
  4. BUSCOPAN [Concomitant]
     Dates: start: 20101119
  5. FORTECORTIN [Concomitant]
     Dates: start: 20101117
  6. ISOSORBIDE MONONITRATE [Concomitant]
     Route: 048
     Dates: start: 20101122
  7. NOVOMIX [Concomitant]
  8. PANTOPRAZOLE [Concomitant]
     Dates: start: 20101118
  9. DALTEPARIN SODIUM [Concomitant]
     Dates: start: 20101117
  10. IRINOTECAN HCL [Suspect]
     Route: 041
     Dates: start: 20101130, end: 20101130
  11. BEVACIZUMAB [Suspect]
     Route: 041
     Dates: start: 20101130, end: 20101130
  12. ASPIRIN [Concomitant]
     Route: 048
  13. AMLODIPINE [Concomitant]
     Route: 048
  14. NITROLINGUAL [Concomitant]
     Dosage: 1-3 BOOSTS
     Route: 048
  15. IRINOTECAN HCL [Suspect]
     Indication: GASTRIC CANCER
     Route: 041
     Dates: start: 20101118, end: 20101118
  16. SIMVASTATIN [Concomitant]
     Route: 048
  17. NOVOMIX [Concomitant]
  18. NAVOBAN [Concomitant]
     Dates: start: 20101119
  19. BEVACIZUMAB [Suspect]
     Indication: GASTRIC CANCER
     Route: 041
     Dates: start: 20101118, end: 20101118
  20. BUSCOPAN [Concomitant]
     Dates: start: 20101118
  21. MOTILIUM [Concomitant]
     Dates: start: 20101118
  22. LISINOPRIL [Concomitant]
     Route: 048

REACTIONS (4)
  - HAEMATOCHEZIA [None]
  - CHEST PAIN [None]
  - PYREXIA [None]
  - ANGINA PECTORIS [None]
